FAERS Safety Report 22897336 (Version 2)
Quarter: 2023Q4

REPORT INFORMATION
  Report Type: Spontaneous
  Country: US (occurrence: US)
  Receive Date: 20230902
  Receipt Date: 20231113
  Transmission Date: 20240109
  Serious: Yes (Other)
  Sender: FDA-Public Use
  Company Number: US-MLMSERVICE-20230821-4496672-1

PATIENT
  Age: 20 Year
  Sex: Female

DRUGS (3)
  1. LAMOTRIGINE [Interacting]
     Active Substance: LAMOTRIGINE
     Indication: Bipolar II disorder
     Dosage: 200 MILLIGRAM, ONCE A DAY
     Route: 065
  2. ETHINYL ESTRADIOL\NORGESTIMATE [Interacting]
     Active Substance: ETHINYL ESTRADIOL\NORGESTIMATE
     Indication: Endometriosis
     Dosage: UNK
     Route: 048
  3. BUPROPION [Concomitant]
     Active Substance: BUPROPION
     Indication: Bipolar disorder
     Dosage: 450 MILLIGRAM, ONCE A DAY
     Route: 065

REACTIONS (3)
  - Bipolar II disorder [Unknown]
  - Disease recurrence [Unknown]
  - Drug interaction [Unknown]
